FAERS Safety Report 9228798 (Version 1)
Quarter: 2013Q2

REPORT INFORMATION
  Report Type: Spontaneous
  Country: US (occurrence: US)
  Receive Date: 20130412
  Receipt Date: 20130412
  Transmission Date: 20140414
  Serious: Yes (Hospitalization, Other)
  Sender: FDA-Public Use
  Company Number: US-BAXTER-2013BAX012880

PATIENT
  Age: 3 Year
  Sex: Male

DRUGS (3)
  1. BEBULIN [Suspect]
     Indication: HAEMORRHAGE
     Route: 065
  2. BEBULIN [Suspect]
     Indication: FACTOR IX DEFICIENCY
     Route: 065
     Dates: start: 2013, end: 201303
  3. BEBULIN [Suspect]
     Indication: HAEMORRHAGE

REACTIONS (4)
  - Anaphylactic reaction [Recovered/Resolved]
  - Fall [Recovered/Resolved]
  - Head injury [Recovered/Resolved]
  - Cerebral haemorrhage [Recovered/Resolved]
